FAERS Safety Report 11503257 (Version 3)
Quarter: 2015Q3

REPORT INFORMATION
  Report Type: Spontaneous
  Country: SA (occurrence: SA)
  Receive Date: 20150914
  Receipt Date: 20150924
  Transmission Date: 20151125
  Serious: Yes (Death)
  Sender: FDA-Public Use
  Company Number: SA-BAXTER-2015BAX049521

PATIENT

DRUGS (1)
  1. SEVOFLURANE. [Suspect]
     Active Substance: SEVOFLURANE
     Indication: DRUG ABUSE
     Route: 065

REACTIONS (3)
  - Device issue [Fatal]
  - Death [Fatal]
  - Drug abuse [Fatal]
